FAERS Safety Report 25177967 (Version 1)
Quarter: 2025Q2

REPORT INFORMATION
  Report Type: Spontaneous
  Country: GB (occurrence: GB)
  Receive Date: 20250409
  Receipt Date: 20250409
  Transmission Date: 20250717
  Serious: Yes (Other)
  Sender: ALEXION PHARMACEUTICALS
  Company Number: GB-AstraZeneca-CH-00841042A

PATIENT
  Age: 58 Year

DRUGS (3)
  1. LOKELMA [Suspect]
     Active Substance: SODIUM ZIRCONIUM CYCLOSILICATE
     Dosage: 5 MILLIGRAM, QD
     Route: 065
  2. Ram [Concomitant]
     Route: 065
  3. Spiro [Concomitant]
     Route: 065

REACTIONS (1)
  - Hyperkalaemia [Recovered/Resolved]
